FAERS Safety Report 9337643 (Version 4)
Quarter: 2013Q4

REPORT INFORMATION
  Report Type: Spontaneous
  Country: US (occurrence: US)
  Receive Date: 20130607
  Receipt Date: 20131213
  Transmission Date: 20140711
  Serious: Yes (Hospitalization, Other)
  Sender: FDA-Public Use
  Company Number: US-009507513-1305USA018014

PATIENT
  Sex: Female
  Weight: 117.91 kg

DRUGS (1)
  1. NUVARING [Suspect]
     Indication: CONTRACEPTION
     Dosage: UNK,
     Route: 067
     Dates: start: 20100403

REACTIONS (9)
  - Pulmonary embolism [Unknown]
  - Deep vein thrombosis [Unknown]
  - Anxiety [Not Recovered/Not Resolved]
  - Onychomycosis [Unknown]
  - Right ventricular dysfunction [Unknown]
  - Menorrhagia [Unknown]
  - Menometrorrhagia [Unknown]
  - Antiphospholipid antibodies positive [Unknown]
  - Post thrombotic syndrome [Unknown]
